FAERS Safety Report 4796290-6 (Version None)
Quarter: 2005Q4

REPORT INFORMATION
  Report Type: 
  Country: None (occurrence: None)
  Receive Date: 20051007
  Receipt Date: 20050929
  Transmission Date: 20060501
  Serious: Yes (Other)
  Sender: FDA-Public Use
  Company Number: 2005-03669

PATIENT
  Age: 56 Year
  Sex: Female

DRUGS (3)
  1. CHLOROQUINE PHOSPHATE [Suspect]
     Indication: RHEUMATOID ARTHRITIS
     Dosage: SEE IMAGAE
     Route: 048
  2. CHLOROQUINE PHOSPHATE [Suspect]
     Indication: RHEUMATOID ARTHRITIS
     Dosage: SEE IMAGAE
     Route: 048
  3. CELECOXIB (CELECOXIB) [Suspect]
     Indication: RHEUMATOID ARTHRITIS
     Dosage: 400 MG, DAILY X 18 MONTHS, ORAL
     Route: 048

REACTIONS (9)
  - BLOOD CREATININE INCREASED [None]
  - DRUG TOXICITY [None]
  - HAEMATURIA [None]
  - LIPID METABOLISM DISORDER [None]
  - LIPIDOSIS [None]
  - MUSCULAR WEAKNESS [None]
  - MYOPATHY STEROID [None]
  - OEDEMA [None]
  - PROTEINURIA [None]
